FAERS Safety Report 5726046-9 (Version None)
Quarter: 2008Q2

REPORT INFORMATION
  Report Type: 
  Country: None (occurrence: None)
  Receive Date: 20080501
  Receipt Date: 20080501
  Transmission Date: 20081010
  Serious: Yes (Life-Threatening)
  Sender: FDA-Public Use
  Company Number: None

PATIENT
  Age: 20 Year
  Sex: Female
  Weight: 78.4723 kg

DRUGS (1)
  1. MIRENA [Suspect]
     Indication: CONTRACEPTION
     Dates: start: 20080414, end: 20080421

REACTIONS (3)
  - IMPAIRED SELF-CARE [None]
  - NERVOUS SYSTEM DISORDER [None]
  - PITUITARY HAEMORRHAGE [None]
